FAERS Safety Report 5131026-0 (Version None)
Quarter: 2006Q4

REPORT INFORMATION
  Report Type: 
  Country: None (occurrence: None)
  Receive Date: 20061019
  Receipt Date: 20060713
  Transmission Date: 20070319
  Serious: Yes (Death)
  Sender: FDA-Public Use
  Company Number: US-BOEHRINGER INGELHEIM PHARMACEUTICALS, INC.-2006-BP-08087BP

PATIENT
  Age: 83 Year
  Sex: Male

DRUGS (1)
  1. FLOMAX [Suspect]
     Route: 048
     Dates: start: 20060325, end: 20060325

REACTIONS (3)
  - DEATH [None]
  - FALL [None]
  - INTRACRANIAL HAEMATOMA [None]
